FAERS Safety Report 15798142 (Version 2)
Quarter: 2019Q1

REPORT INFORMATION
  Report Type: Spontaneous
  Country: CN (occurrence: CN)
  Receive Date: 20190108
  Receipt Date: 20190110
  Transmission Date: 20190417
  Serious: Yes (Other)
  Sender: FDA-Public Use
  Company Number: CN-ELI_LILLY_AND_COMPANY-CN201901001771

PATIENT
  Age: 23 Year
  Sex: Female

DRUGS (3)
  1. GEMCITABINE HYDROCHLORIDE. [Suspect]
     Active Substance: GEMCITABINE HYDROCHLORIDE
     Indication: CHOLANGIOCARCINOMA
     Dosage: 1000 MG/M2, CYCLICAL
     Route: 042
     Dates: start: 20170516, end: 20170908
  2. CAPECITABINE. [Suspect]
     Active Substance: CAPECITABINE
     Dosage: 0.5 G, CYCLICAL
     Route: 048
     Dates: start: 20170516, end: 20170908
  3. CAPECITABINE. [Suspect]
     Active Substance: CAPECITABINE
     Indication: CHOLANGIOCARCINOMA
     Dosage: 1.5 G, CYCLICAL
     Route: 048
     Dates: start: 2017, end: 2017

REACTIONS (5)
  - Anaemia [Recovering/Resolving]
  - Decreased appetite [Unknown]
  - Alanine aminotransferase abnormal [Recovering/Resolving]
  - Bone marrow failure [Recovering/Resolving]
  - Vomiting [Recovering/Resolving]

NARRATIVE: CASE EVENT DATE: 2017
